FAERS Safety Report 5094208-2 (Version None)
Quarter: 2006Q3

REPORT INFORMATION
  Report Type: 
  Country: None (occurrence: None)
  Receive Date: 20060830
  Receipt Date: 20060830
  Transmission Date: 20061208
  Serious: Yes (Hospitalization)
  Sender: FDA-Public Use
  Company Number: None

PATIENT
  Age: 53 Year
  Sex: Female

DRUGS (1)
  1. OMNIPAQUE 300 [Suspect]
     Indication: COMPUTERISED TOMOGRAM ABDOMEN
     Dates: start: 20060418

REACTIONS (5)
  - EYE PRURITUS [None]
  - LACRIMATION INCREASED [None]
  - POST PROCEDURAL COMPLICATION [None]
  - PRURITUS [None]
  - THROAT IRRITATION [None]
